FAERS Safety Report 22907008 (Version 2)
Quarter: 2023Q4

REPORT INFORMATION
  Report Type: Spontaneous
  Country: LT (occurrence: LT)
  Receive Date: 20230905
  Receipt Date: 20231113
  Transmission Date: 20240110
  Serious: Yes (Hospitalization, Other)
  Sender: FDA-Public Use
  Company Number: LT-AMNEAL PHARMACEUTICALS-2023-AMRX-03084

PATIENT
  Age: 47 Year
  Sex: Female

DRUGS (3)
  1. ESCITALOPRAM [Suspect]
     Active Substance: ESCITALOPRAM OXALATE
     Indication: Suicide attempt
     Dosage: UNK
     Route: 048
  2. LEVOTHYROXINE SODIUM [Suspect]
     Active Substance: LEVOTHYROXINE SODIUM
     Indication: Suicide attempt
     Dosage: UNK
     Route: 048
  3. CODEINE [Suspect]
     Active Substance: CODEINE
     Indication: Product used for unknown indication
     Dosage: UNK
     Route: 048

REACTIONS (7)
  - Systemic inflammatory response syndrome [Recovered/Resolved]
  - Acute kidney injury [Recovered/Resolved]
  - Respiratory depression [Recovered/Resolved]
  - Sepsis [Recovered/Resolved]
  - Infection [Recovered/Resolved]
  - Intentional overdose [Unknown]
  - Suicide attempt [Unknown]
